FAERS Safety Report 7523603-4 (Version None)
Quarter: 2011Q2

REPORT INFORMATION
  Report Type: 
  Country: None (occurrence: None)
  Receive Date: 20110601
  Receipt Date: 20110601
  Transmission Date: 20111010
  Serious: Yes (Life-Threatening, Disabling, Other)
  Sender: FDA-Public Use
  Company Number: None

PATIENT
  Sex: Male
  Weight: 129.2752 kg

DRUGS (1)
  1. LANTUS [Suspect]
     Indication: DIABETES MELLITUS
     Dosage: 50 UNITS ONCE PER DAY ID
     Route: 023
     Dates: start: 20100501, end: 20110501

REACTIONS (11)
  - TREMOR [None]
  - DISORIENTATION [None]
  - HYPERSENSITIVITY [None]
  - HYPOGLYCAEMIA [None]
  - DIZZINESS [None]
  - COORDINATION ABNORMAL [None]
  - ANAPHYLACTIC REACTION [None]
  - BLOOD GLUCOSE DECREASED [None]
  - RETCHING [None]
  - INJECTION SITE URTICARIA [None]
  - INJECTION SITE VESICLES [None]
